FAERS Safety Report 21396361 (Version 1)
Quarter: 2022Q3

REPORT INFORMATION
  Report Type: Spontaneous
  Country: US (occurrence: None)
  Receive Date: 20220930
  Receipt Date: 20220930
  Transmission Date: 20221027
  Serious: Yes (Hospitalization)
  Sender: FDA-Public Use
  Company Number: 2022A327745

PATIENT

DRUGS (1)
  1. TEZSPIRE [Suspect]
     Active Substance: TEZEPELUMAB-EKKO
     Indication: Asthma
     Dosage: 1
     Route: 058
     Dates: start: 20220906

REACTIONS (5)
  - Heart rate increased [Unknown]
  - Sneezing [Unknown]
  - Nasopharyngitis [Unknown]
  - Asthma [Unknown]
  - Blood pressure increased [Unknown]
